FAERS Safety Report 7587589-9 (Version None)
Quarter: 2011Q3

REPORT INFORMATION
  Report Type: 
  Country: None (occurrence: None)
  Receive Date: 20110704
  Receipt Date: 20110621
  Transmission Date: 20111222
  Serious: Yes (Other)
  Sender: FDA-Public Use
  Company Number: PHHY2011FR56125

PATIENT
  Age: 78 Year
  Sex: Female
  Weight: 42 kg

DRUGS (3)
  1. EXELON [Suspect]
     Indication: DEMENTIA ALZHEIMER'S TYPE
     Dosage: 2 DF, (4.6 MG/24 H)
     Route: 062
  2. EXELON [Suspect]
     Dosage: 4.5 MG, BID
  3. BIPRETERAX [Concomitant]

REACTIONS (5)
  - NAUSEA [None]
  - BLOOD PRESSURE INCREASED [None]
  - DYSPEPSIA [None]
  - HAEMATEMESIS [None]
  - GASTRIC DISORDER [None]
